FAERS Safety Report 6361215-9 (Version None)
Quarter: 2009Q3

REPORT INFORMATION
  Report Type: 
  Country: None (occurrence: None)
  Receive Date: 20090918
  Receipt Date: 20090908
  Transmission Date: 20100115
  Serious: Yes (Life-Threatening, Hospitalization)
  Sender: FDA-Public Use
  Company Number: GB-PFIZER INC-2009265774

PATIENT
  Age: 56 Year

DRUGS (3)
  1. SOMATROPIN [Suspect]
     Indication: HYPOPITUITARISM
     Dosage: UNK
     Route: 058
     Dates: start: 19990812
  2. SOMATROPIN [Suspect]
     Dosage: UNK
     Dates: start: 20060608
  3. HYDROCORTISONE SODIUM SUCCINATE [Concomitant]
     Dosage: 20 MG, 1X/DAY
     Dates: start: 19920915

REACTIONS (1)
  - TONSIL CANCER [None]
